FAERS Safety Report 4336050-3 (Version None)
Quarter: 2004Q2

REPORT INFORMATION
  Report Type: 
  Country: None (occurrence: None)
  Receive Date: 20040406
  Receipt Date: 20040322
  Transmission Date: 20050107
  Serious: Yes (Hospitalization, Other)
  Sender: FDA-Public Use
  Company Number: 235706

PATIENT
  Sex: Male

DRUGS (4)
  1. NOVORAPID PENFILL 3ML (NOVORAPID PENFILL 3 ML)  (INSULIN ASPART) SOLUT [Suspect]
     Indication: DIABETES MELLITUS INSULIN-DEPENDENT
     Dosage: INTRAUTERINE
     Route: 015
     Dates: start: 20030829
  2. NOVOLIN GE TORONTO PENFIL (INSULIN HUMAN) [Concomitant]
  3. CALCIUM (CALCIUM) [Concomitant]
  4. MULTIVITAMIN [Concomitant]

REACTIONS (3)
  - HYPOGLYCAEMIA NEONATAL [None]
  - MATERNAL DRUGS AFFECTING FOETUS [None]
  - NEONATAL RESPIRATORY DISTRESS SYNDROME [None]
